FAERS Safety Report 9169987 (Version 1)
Quarter: 2013Q1

REPORT INFORMATION
  Report Type: Spontaneous
  Country: US (occurrence: US)
  Receive Date: 20130319
  Receipt Date: 20130319
  Transmission Date: 20140127
  Serious: No
  Sender: FDA-Public Use
  Company Number: US-BIOGENIDEC-2013BI025288

PATIENT
  Sex: Male

DRUGS (4)
  1. AVONEX [Suspect]
     Indication: PRODUCT USED FOR UNKNOWN INDICATION
     Route: 030
  2. VIAGRA [Concomitant]
  3. FOLBIC [Concomitant]
  4. TRIAMCINOLONE ACETONIDE [Concomitant]

REACTIONS (2)
  - Rash [Unknown]
  - Pollakiuria [Unknown]
